FAERS Safety Report 4984406-8 (Version None)
Quarter: 2006Q2

REPORT INFORMATION
  Report Type: 
  Country: None (occurrence: None)
  Receive Date: 20060420
  Receipt Date: 20060411
  Transmission Date: 20061013
  Serious: Yes (Hospitalization)
  Sender: FDA-Public Use
  Company Number: 2006-01437

PATIENT

DRUGS (4)
  1. DOXYCYCLINE HYCLATE [Suspect]
     Indication: BRUCELLOSIS
     Dosage: 100 MG, BID X 3 WEEKS, ORAL
     Route: 048
  2. DOXYCYCLINE HYCLATE [Suspect]
     Indication: PROPHYLAXIS
     Dosage: 100 MG, BID X 3 WEEKS, ORAL
     Route: 048
  3. RIFAMPICIN [Suspect]
     Indication: BRUCELLOSIS
     Dosage: 450 OR 600 MG DAILY X 3 WEEKS, ORAL
     Route: 048
  4. RIFAMPICIN [Suspect]
     Indication: PROPHYLAXIS
     Dosage: 450 OR 600 MG DAILY X 3 WEEKS, ORAL
     Route: 048

REACTIONS (2)
  - HEPATITIS [None]
  - PYREXIA [None]
